FAERS Safety Report 15855736 (Version 6)
Quarter: 2019Q3

REPORT INFORMATION
  Report Type: Report from Study
  Country: DE (occurrence: DE)
  Receive Date: 20190122
  Receipt Date: 20190925
  Transmission Date: 20191004
  Serious: Yes (Death, Life-Threatening, Hospitalization, Other)
  Sender: FDA-Public Use
  Company Number: DE-GILEAD-2018-0344938

PATIENT
  Age: 61 Year
  Sex: Male
  Weight: 80.7 kg

DRUGS (24)
  1. MESNA. [Suspect]
     Active Substance: MESNA
     Indication: PROPHYLAXIS
     Dosage: 100 ML/20 MG, QD
     Route: 042
     Dates: start: 20180425, end: 20180427
  2. PANTOZOL [Concomitant]
     Active Substance: PANTOPRAZOLE SODIUM
     Dosage: UNK
     Dates: end: 20180626
  3. ACICLOVIR [Concomitant]
     Active Substance: ACYCLOVIR
     Dosage: UNK
     Dates: end: 20180529
  4. FOLIC ACID. [Concomitant]
     Active Substance: FOLIC ACID
     Dosage: UNK
  5. HYLOCOMOD [Concomitant]
     Dosage: UNK
     Dates: start: 20180418, end: 20180418
  6. MERONEM [Concomitant]
     Active Substance: MEROPENEM
     Dosage: UNK
     Dates: start: 20180509, end: 20180520
  7. COTRIM FORTE [Concomitant]
     Active Substance: SULFAMETHOXAZOLE\TRIMETHOPRIM
     Dosage: UNK
     Dates: end: 20180501
  8. TORASEMID [Concomitant]
     Active Substance: TORSEMIDE
     Indication: RENAL FAILURE
     Dosage: UNK
     Dates: end: 20180531
  9. SODIUM CARBONATE [Concomitant]
     Active Substance: SODIUM CARBONATE
  10. PARACETAMOL [Concomitant]
     Active Substance: ACETAMINOPHEN
     Dosage: UNK
     Dates: start: 20180430, end: 20180430
  11. BISOPROLOL [Concomitant]
     Active Substance: BISOPROLOL
     Dosage: UNK
     Dates: start: 20181127
  12. FLUDARABINE [Suspect]
     Active Substance: FLUDARABINE PHOSPHATE
     Indication: BONE MARROW CONDITIONING REGIMEN
     Dosage: 100 ML/60 MG, QD
     Route: 042
     Dates: start: 20180425, end: 20180427
  13. METOPROLOL. [Concomitant]
     Active Substance: METOPROLOL
     Dosage: UNK
     Dates: end: 20180403
  14. KEPPRA [Concomitant]
     Active Substance: LEVETIRACETAM
  15. AXICABTAGENE CILOLEUCEL [Suspect]
     Active Substance: AXICABTAGENE CILOLEUCEL
     Indication: DIFFUSE LARGE B-CELL LYMPHOMA REFRACTORY
     Dosage: 68 ML, ONCE
     Route: 042
     Dates: start: 20180430, end: 20180430
  16. EXJADE [Concomitant]
     Active Substance: DEFERASIROX
     Dosage: UNK
     Dates: start: 20180522, end: 20180529
  17. AMPHO MORONAL [Concomitant]
     Active Substance: AMPHOTERICIN B
     Dosage: UNK
     Dates: start: 20180426, end: 20180430
  18. ALLOPURINOL. [Concomitant]
     Active Substance: ALLOPURINOL
     Dosage: UNK
     Dates: start: 20180425, end: 20180522
  19. VANCOMYCIN [Concomitant]
     Active Substance: VANCOMYCIN
  20. CYCLOPHOSPHAMIDE. [Suspect]
     Active Substance: CYCLOPHOSPHAMIDE
     Indication: BONE MARROW CONDITIONING REGIMEN
     Dosage: 250 ML/1000 MG, QD
     Route: 042
     Dates: start: 20180425, end: 20180427
  21. VITAMIN D NOS [Concomitant]
     Active Substance: VITAMIN D NOS
     Dosage: UNK
  22. CIPROFLOXACIN. [Concomitant]
     Active Substance: CIPROFLOXACIN
     Dosage: UNK
     Dates: start: 20180501, end: 20180521
  23. TAVEGIL [CLEMASTINE] [Concomitant]
     Active Substance: CLEMASTINE
     Dosage: UNK
     Dates: start: 20180430, end: 20180430
  24. VFEND [Concomitant]
     Active Substance: VORICONAZOLE
     Dosage: UNK
     Dates: start: 20180503, end: 20180503

REACTIONS (2)
  - Acute myeloid leukaemia [Fatal]
  - Renal failure [Recovered/Resolved]

NARRATIVE: CASE EVENT DATE: 20180529
